FAERS Safety Report 8454251-X (Version None)
Quarter: 2012Q2

REPORT INFORMATION
  Report Type: 
  Country: None (occurrence: None)
  Receive Date: 20120620
  Receipt Date: 20120604
  Transmission Date: 20120825
  Serious: Yes (Hospitalization, Other)
  Sender: FDA-Public Use
  Company Number: CHPA2012US011853

PATIENT
  Sex: Female

DRUGS (4)
  1. NOVOLOG [Concomitant]
     Indication: TYPE 2 DIABETES MELLITUS
     Dosage: UNK
  2. HUMALOG [Concomitant]
     Indication: TYPE 2 DIABETES MELLITUS
     Dosage: UNK
  3. TRANSDERM SCOP [Suspect]
     Indication: MENIERE'S DISEASE
     Dosage: 1 DF, UNK
     Route: 062
     Dates: start: 20110101
  4. CLARITIN [Concomitant]
     Indication: SEASONAL ALLERGY
     Dosage: UNK

REACTIONS (16)
  - MENIERE'S DISEASE [None]
  - VOMITING [None]
  - NAUSEA [None]
  - DIZZINESS [None]
  - CLOSTRIDIAL INFECTION [None]
  - DRUG ADMINISTERED AT INAPPROPRIATE SITE [None]
  - DEHYDRATION [None]
  - HIATUS HERNIA [None]
  - URTICARIA [None]
  - APPLICATION SITE RASH [None]
  - APPLICATION SITE IRRITATION [None]
  - DIVERTICULUM [None]
  - APPLICATION SITE ERYTHEMA [None]
  - APPLICATION SITE PRURITUS [None]
  - OFF LABEL USE [None]
  - HAEMATOCHEZIA [None]
